FAERS Safety Report 14883090 (Version 1)
Quarter: 2018Q2

REPORT INFORMATION
  Report Type: Spontaneous
  Country: US (occurrence: US)
  Receive Date: 20180511
  Receipt Date: 20180511
  Transmission Date: 20180711
  Serious: Yes (Other)
  Sender: FDA-Public Use
  Company Number: US-NOVOPROD-598657

PATIENT
  Age: 68 Year
  Sex: Female
  Weight: 90.7 kg

DRUGS (3)
  1. NOVOLOG [Suspect]
     Active Substance: INSULIN ASPART
     Dosage: 5 U WITH EACH MEAL
     Route: 058
     Dates: start: 201804
  2. NOVOLOG [Suspect]
     Active Substance: INSULIN ASPART
     Indication: TYPE 2 DIABETES MELLITUS
     Dosage: 12 U WITH EACH MEAL
     Route: 058
     Dates: start: 2012, end: 201804
  3. COUMADIN [Concomitant]
     Active Substance: WARFARIN SODIUM
     Indication: COAGULOPATHY
     Dosage: UNK
     Dates: start: 2008

REACTIONS (2)
  - Blood glucose increased [Not Recovered/Not Resolved]
  - Dementia Alzheimer^s type [Not Recovered/Not Resolved]

NARRATIVE: CASE EVENT DATE: 2016
